FAERS Safety Report 7883483-4 (Version None)
Quarter: 2011Q4

REPORT INFORMATION
  Report Type: 
  Country: None (occurrence: None)
  Receive Date: 20111102
  Receipt Date: 20100920
  Transmission Date: 20120403
  Serious: No
  Sender: FDA-Public Use
  Company Number: US-GLAXOSMITHKLINE-A0882075A

PATIENT
  Age: 50 Year
  Sex: Female

DRUGS (4)
  1. AVAPRO [Concomitant]
  2. ZETIA [Concomitant]
  3. COREG CR [Concomitant]
  4. RYTHMOL SR [Suspect]
     Indication: HEART RATE IRREGULAR
     Dosage: 325MG TWICE PER DAY
     Route: 048
     Dates: start: 20100807, end: 20100918

REACTIONS (3)
  - BACK PAIN [None]
  - ERUCTATION [None]
  - FLATULENCE [None]
